FAERS Safety Report 8503858-X (Version None)
Quarter: 2012Q3

REPORT INFORMATION
  Report Type: 
  Country: None (occurrence: None)
  Receive Date: 20120711
  Receipt Date: 20120627
  Transmission Date: 20120928
  Serious: Yes (Life-Threatening, Hospitalization)
  Sender: FDA-Public Use
  Company Number: FR-BRISTOL-MYERS SQUIBB COMPANY-16726093

PATIENT
  Age: 67 Year
  Sex: Male

DRUGS (16)
  1. VITAMIN D [Suspect]
     Indication: OSTEOPOROSIS
  2. POTASSIUM CHLORIDE [Suspect]
     Indication: HYPOKALAEMIA
     Route: 048
     Dates: start: 20120217
  3. CEFTRIAXONE [Interacting]
     Indication: SEPTIC SHOCK
     Dosage: POWDER FOR SOLUTION FOR INJECTION
     Route: 042
     Dates: start: 20120312, end: 20120316
  4. IMURAN [Suspect]
     Indication: ALLERGIC GRANULOMATOUS ANGIITIS
     Dates: start: 20120302
  5. CORDARONE [Concomitant]
  6. SYMBICORT [Suspect]
     Dosage: 1 DF = 2 PUFFS
     Route: 055
  7. ATORVASTATIN [Suspect]
     Indication: HYPERCHOLESTEROLAEMIA
     Dosage: FILM-COATED TABLET
     Route: 048
     Dates: start: 20120217
  8. COUMADIN [Interacting]
     Indication: ATRIAL FIBRILLATION
     Route: 048
     Dates: start: 20050101, end: 20120314
  9. LASIX [Suspect]
     Dosage: SCORED TABLET
     Route: 048
     Dates: start: 20120217
  10. VITAMIN B1 + B6 [Suspect]
     Route: 048
     Dates: start: 20120217
  11. ROVAMYCINE [Interacting]
     Indication: SEPTIC SHOCK
     Route: 051
  12. BISOPROLOL FUMARATE [Suspect]
     Route: 048
  13. ALFUZOSIN HYDROCHLORIDE [Suspect]
     Dosage: EXTENDED-RELEASE TABLET
     Route: 048
     Dates: start: 20120217
  14. LYRICA [Suspect]
     Dosage: CAPS
     Route: 048
     Dates: start: 20120217
  15. ACTONEL [Suspect]
     Dosage: FILM-COATED TABLET
     Route: 048
     Dates: start: 20120302
  16. PREDNISONE TAB [Suspect]
     Indication: ALLERGIC GRANULOMATOUS ANGIITIS
     Dosage: DOSE DECREASE OF 5 MG ALL 10 DAYS TO REACH 10 MG DAILY,ALSO RECEIVED 25MG
     Route: 048
     Dates: start: 20120302

REACTIONS (4)
  - ABDOMINAL WALL HAEMATOMA [None]
  - DRUG INTERACTION [None]
  - SEPTIC SHOCK [None]
  - ALLERGIC GRANULOMATOUS ANGIITIS [None]
